FAERS Safety Report 20562526 (Version 1)
Quarter: 2022Q1

REPORT INFORMATION
  Report Type: Report from Study
  Country: US (occurrence: US)
  Receive Date: 20220307
  Receipt Date: 20220307
  Transmission Date: 20220423
  Serious: Yes (Hospitalization, Other)
  Sender: FDA-Public Use
  Company Number: US-BRISTOL-MYERS SQUIBB COMPANY-BMS-2022-034261

PATIENT
  Age: 32 Year
  Sex: Female
  Weight: 64.5 kg

DRUGS (2)
  1. NIVOLUMAB [Suspect]
     Active Substance: NIVOLUMAB
     Indication: Adenocarcinoma of the cervix
     Dosage: 480 MILLIGRAM,ONCE
     Route: 042
     Dates: start: 20211115
  2. LUCITANIB [Suspect]
     Active Substance: LUCITANIB
     Indication: Adenocarcinoma of the cervix
     Dosage: 6 MILLIGRAM, QD
     Route: 048
     Dates: start: 20211115

REACTIONS (1)
  - Large intestine perforation [Unknown]

NARRATIVE: CASE EVENT DATE: 20220222
